FAERS Safety Report 8014510-1 (Version None)
Quarter: 2011Q4

REPORT INFORMATION
  Report Type: 
  Country: None (occurrence: None)
  Receive Date: 20111229
  Receipt Date: 20111222
  Transmission Date: 20120403
  Serious: Yes (Hospitalization, Other)
  Sender: FDA-Public Use
  Company Number: US-BAYER-2011-123904

PATIENT
  Age: 81 Year
  Sex: Female

DRUGS (15)
  1. RIVAROXABAN [Suspect]
     Indication: HIP SURGERY
     Dosage: DOSAGE FORM: TABLET
     Route: 065
     Dates: start: 20111023, end: 20111025
  2. ACETAMINOPHEN [Concomitant]
  3. CRESTOR [Concomitant]
  4. VITAMIN E [TOCOPHERYL ACETATE] [Concomitant]
     Dosage: DOSAGE FORM: CAPSULE
  5. SYNTHROID [Concomitant]
     Route: 048
  6. PREDNISONE TAB [Concomitant]
     Route: 048
  7. CELEXA [Concomitant]
     Route: 048
  8. CALCIUM D [Concomitant]
     Route: 048
  9. ACETYLSALICYLIC ACID SRT [Suspect]
     Route: 048
  10. DYAZIDE [Concomitant]
     Route: 048
  11. LYRICA [Concomitant]
     Route: 048
  12. CARVEDILOL [Concomitant]
     Route: 048
  13. ULTRAM [Concomitant]
  14. POTASSIUM CHLORIDE [Concomitant]
  15. GERITOL [VITAMINS NOS] [Concomitant]
     Route: 048

REACTIONS (1)
  - HAEMORRHAGIC ANAEMIA [None]
